FAERS Safety Report 12866415 (Version 1)
Quarter: 2016Q4

REPORT INFORMATION
  Report Type: Spontaneous
  Country: US (occurrence: US)
  Receive Date: 20161020
  Receipt Date: 20161020
  Transmission Date: 20170207
  Serious: No
  Sender: FDA-Public Use
  Company Number: US-SA-2016SA102679

PATIENT
  Age: 66 Year
  Sex: Female

DRUGS (9)
  1. LEVETIRACETAM. [Concomitant]
     Active Substance: LEVETIRACETAM
     Dosage: 250 MG
  2. LEVETIRACETAM. [Concomitant]
     Active Substance: LEVETIRACETAM
     Dosage: 500 MG
  3. CLOPIDOGREL [Concomitant]
     Active Substance: CLOPIDOGREL BISULFATE
     Dosage: 75 MG
  4. ONDANSETRON [Concomitant]
     Active Substance: ONDANSETRON
     Dosage: 4 MG
  5. LAMOTRIGINE. [Concomitant]
     Active Substance: LAMOTRIGINE
     Dosage: 25 MG
  6. SIMVASTATIN. [Concomitant]
     Active Substance: SIMVASTATIN
     Dosage: 20 MG
  7. AUBAGIO [Suspect]
     Active Substance: TERIFLUNOMIDE
     Indication: MULTIPLE SCLEROSIS
     Route: 048
  8. MECLIZINE [Concomitant]
     Active Substance: MECLIZINE HYDROCHLORIDE
     Dosage: 12.5 MG
  9. CIPRODEX [Concomitant]
     Active Substance: CIPROFLOXACIN HYDROCHLORIDE\DEXAMETHASONE
     Dosage: SUS- 0.3-0.1 %

REACTIONS (1)
  - Back pain [Not Recovered/Not Resolved]

NARRATIVE: CASE EVENT DATE: 201603
